FAERS Safety Report 22250036 (Version 1)
Quarter: 2023Q2

REPORT INFORMATION
  Report Type: Report from Study
  Country: US (occurrence: US)
  Receive Date: 20230425
  Receipt Date: 20230425
  Transmission Date: 20230722
  Serious: Yes (Hospitalization, Other)
  Sender: FDA-Public Use
  Company Number: US-ABBVIE-4737086

PATIENT
  Age: 64 Year
  Sex: Male

DRUGS (1)
  1. SKYRIZI [Suspect]
     Active Substance: RISANKIZUMAB-RZAA
     Indication: Crohn^s disease
     Route: 058
     Dates: start: 20171216, end: 20230320

REACTIONS (3)
  - Sepsis [Not Recovered/Not Resolved]
  - Stoma site discharge [Unknown]
  - Hypotension [Unknown]

NARRATIVE: CASE EVENT DATE: 20230410
